FAERS Safety Report 11936296 (Version 2)
Quarter: 2016Q1

REPORT INFORMATION
  Report Type: Spontaneous
  Country: US (occurrence: US)
  Receive Date: 20160121
  Receipt Date: 20160126
  Transmission Date: 20160526
  Serious: No
  Sender: FDA-Public Use
  Company Number: US-009507513-1601USA005886

PATIENT
  Sex: Female
  Weight: 115.65 kg

DRUGS (1)
  1. NEXPLANON [Suspect]
     Active Substance: ETONOGESTREL
     Dosage: UNK
     Route: 059
     Dates: start: 20160112, end: 20160113

REACTIONS (2)
  - No adverse event [Unknown]
  - Device expulsion [Unknown]

NARRATIVE: CASE EVENT DATE: 20160113
